FAERS Safety Report 5894486-3 (Version None)
Quarter: 2008Q3

REPORT INFORMATION
  Report Type: 
  Country: None (occurrence: None)
  Receive Date: 20080922
  Receipt Date: 20080908
  Transmission Date: 20090109
  Serious: Yes (Death)
  Sender: FDA-Public Use
  Company Number: SPV1-2008-01078

PATIENT
  Age: 54 Year
  Sex: Male
  Weight: 117.9 kg

DRUGS (6)
  1. LIALDA [Suspect]
     Indication: COLITIS ULCERATIVE
     Dosage: 4.8 G, 1X/DAY:GD, ORAL
     Route: 048
     Dates: start: 20070901
  2. MULTIVITAMIN /00097801/ (ASCORBIC ACID, CALCIUM PANTOTHENATE, ERGOCALC [Concomitant]
  3. FISH OIL (FISH OIL) [Concomitant]
  4. ROZEREM [Concomitant]
  5. AVAPRO [Concomitant]
  6. CUTIVATE (FLUTICASONE PROPIONATE) [Concomitant]

REACTIONS (6)
  - ANXIETY [None]
  - BRONCHITIS [None]
  - COMPLETED SUICIDE [None]
  - COUGH [None]
  - DEPRESSION [None]
  - TREATMENT NONCOMPLIANCE [None]
